FAERS Safety Report 9611036 (Version 1)
Quarter: 2013Q4

REPORT INFORMATION
  Report Type: Spontaneous
  Country: US (occurrence: US)
  Receive Date: 20131009
  Receipt Date: 20131009
  Transmission Date: 20140711
  Serious: No
  Sender: FDA-Public Use
  Company Number: US-009507513-1309USA010996

PATIENT
  Age: 93 Year
  Sex: Female

DRUGS (4)
  1. NASONEX [Suspect]
     Indication: NASAL CONGESTION
     Dosage: 2 PUMPS EACH NOSTRIL, TWICE DAILY
     Dates: start: 20130919
  2. NASONEX [Suspect]
     Indication: EAR CONGESTION
  3. NORVASC [Concomitant]
  4. LOPRESSOR [Concomitant]

REACTIONS (1)
  - Dizziness postural [Not Recovered/Not Resolved]
